FAERS Safety Report 5093348-1 (Version None)
Quarter: 2006Q3

REPORT INFORMATION
  Report Type: 
  Country: None (occurrence: None)
  Receive Date: 20060830
  Receipt Date: 20060816
  Transmission Date: 20061208
  Serious: Yes (Other)
  Sender: FDA-Public Use
  Company Number: US-JNJFOC-20060804204

PATIENT
  Sex: Female
  Weight: 58.97 kg

DRUGS (6)
  1. ELMIRON [Suspect]
     Indication: CYSTITIS INTERSTITIAL
     Dates: start: 20060101, end: 20060501
  2. NORCO [Concomitant]
     Indication: PAIN
     Route: 048
  3. ATARAX [Concomitant]
  4. IMIPRAMINE [Concomitant]
     Indication: CYSTITIS INTERSTITIAL
     Route: 048
  5. PROZAC [Concomitant]
     Indication: DEPRESSION
     Route: 048
  6. BCP [Concomitant]
     Indication: MENSTRUATION IRREGULAR

REACTIONS (4)
  - CONVULSION [None]
  - INSOMNIA [None]
  - MUSCLE TWITCHING [None]
  - VOMITING [None]
